FAERS Safety Report 9513310 (Version 1)
Quarter: 2013Q3

REPORT INFORMATION
  Report Type: Spontaneous
  Country: US (occurrence: US)
  Receive Date: 20130910
  Receipt Date: 20130910
  Transmission Date: 20140515
  Serious: Yes (Hospitalization, Other)
  Sender: FDA-Public Use
  Company Number: US-UCBSA-096581

PATIENT
  Age: 74 Year
  Sex: Male

DRUGS (31)
  1. ZAROXOLYN [Suspect]
     Dosage: 2.5 MG AS REQUIRED DAILY
     Dates: start: 20120823, end: 201211
  2. ZAROXOLYN [Suspect]
  3. ALEGLITAZAR [Suspect]
     Indication: CARDIOVASCULAR EVENT PROPHYLAXIS
     Dosage: UNKNOWN DOSE
     Route: 048
     Dates: start: 20101210
  4. COREG [Concomitant]
     Dates: start: 2006
  5. CRESTOR [Concomitant]
     Dates: start: 2008, end: 201302
  6. DIGITEK [Concomitant]
  7. LANTUS [Concomitant]
     Dosage: 90 UNITS; TOTAL DAILY DOSE 180 UNITS
     Dates: start: 2002
  8. LASIX [Concomitant]
     Dates: start: 2006, end: 201302
  9. LASIX [Concomitant]
     Dates: start: 201302, end: 20130308
  10. LISINOPRIL [Concomitant]
     Dates: start: 2000, end: 20130308
  11. LOVAZA [Concomitant]
     Dates: start: 2009
  12. ASPIRIN [Concomitant]
     Dates: start: 2006
  13. CINNAMON [Concomitant]
     Dates: start: 2010
  14. PLAVIX [Concomitant]
     Dates: start: 2010
  15. VENTOLIN INHALER [Concomitant]
     Dosage: 1 IN 1 AS REQUIRED
     Dates: start: 2008
  16. GINGER [Concomitant]
     Dosage: UNKNOWN DOSE
     Dates: start: 2008, end: 201212
  17. RANEXA [Concomitant]
     Dates: start: 20121026
  18. AMARYL [Concomitant]
     Dates: start: 20111011
  19. FISH OIL [Concomitant]
     Dates: start: 201212
  20. ALDACTONE [Concomitant]
     Dates: start: 20130228
  21. SPIRIVA [Concomitant]
     Dates: start: 201211
  22. GLIMEPIRIDE [Concomitant]
     Dates: start: 201212
  23. VITAMIN D3 [Concomitant]
     Dosage: 5000 (UNITS UNSPECIFIED)
  24. ATORVASTATIN [Concomitant]
     Dates: start: 201302
  25. CICLOPIROX [Concomitant]
     Dosage: UNKNOWN DOSE
  26. SITAGLIPTIN [Concomitant]
     Dates: start: 20121026, end: 201212
  27. METFORMIN [Concomitant]
     Dosage: UNKNOWN DOSE
     Dates: start: 2008, end: 20110907
  28. METFORMIN [Concomitant]
     Dates: start: 20121026, end: 201212
  29. NOVOLOG [Concomitant]
     Dosage: 25 UNITS
     Dates: start: 2002, end: 20110218
  30. NOVOLOG [Concomitant]
     Dosage: SLIDING SCALE
     Dates: start: 20111011
  31. ZINC [Concomitant]

REACTIONS (6)
  - Hypokalaemia [Recovered/Resolved]
  - Urinary tract infection [Recovered/Resolved]
  - Renal failure [Unknown]
  - Dizziness [Unknown]
  - Nausea [Unknown]
  - Dehydration [Unknown]
